FAERS Safety Report 9011863 (Version 1)
Quarter: 2013Q1

REPORT INFORMATION
  Report Type: Spontaneous
  Country: US (occurrence: US)
  Receive Date: 20130113
  Receipt Date: 20130113
  Transmission Date: 20140127
  Serious: Yes (Other)
  Sender: FDA-Public Use
  Company Number: US-009507513-1301USA003769

PATIENT
  Sex: 0

DRUGS (4)
  1. SINGULAIR [Suspect]
     Route: 048
  2. CETIRIZINE HYDROCHLORIDE [Suspect]
     Route: 048
  3. FLUTICASONE PROPIONATE [Concomitant]
     Dosage: INHALATION
     Route: 055
  4. ALBUTEROL [Concomitant]
     Dosage: INHALATION
     Route: 055

REACTIONS (1)
  - Type 1 diabetes mellitus [Unknown]
